FAERS Safety Report 9349153 (Version 1)
Quarter: 2013Q2

REPORT INFORMATION
  Report Type: Report from Study
  Country: DE (occurrence: DE)
  Receive Date: 20130614
  Receipt Date: 20130614
  Transmission Date: 20140414
  Serious: Yes (Life-Threatening, Hospitalization)
  Sender: FDA-Public Use
  Company Number: DE-ABBOTT-13P-062-1035076-00

PATIENT
  Age: 67 Year
  Sex: Male
  Weight: 90 kg

DRUGS (5)
  1. HUMIRA [Suspect]
     Indication: ANKYLOSING SPONDYLITIS
     Route: 058
     Dates: start: 20110530, end: 201212
  2. METHOTREXATE [Suspect]
     Indication: ANKYLOSING SPONDYLITIS
     Route: 048
     Dates: start: 201209, end: 201212
  3. METHOTREXATE [Suspect]
     Route: 048
     Dates: start: 201304
  4. PREDNISOLONE [Suspect]
     Indication: ANKYLOSING SPONDYLITIS
     Route: 048
     Dates: start: 201105, end: 201212
  5. METAMIZOLE [Concomitant]
     Indication: PRODUCT USED FOR UNKNOWN INDICATION

REACTIONS (10)
  - Gallbladder perforation [Recovered/Resolved]
  - Sepsis [Recovered/Resolved]
  - Erysipelas [Not Recovered/Not Resolved]
  - Cholecystitis [Recovered/Resolved]
  - Cholelithiasis [Recovered/Resolved]
  - Bronchopneumonia [Recovered/Resolved]
  - Renal failure acute [Recovered/Resolved]
  - Cardiac failure [Recovered/Resolved]
  - Hypertensive crisis [Recovered/Resolved]
  - Colon neoplasm [Unknown]
